FAERS Safety Report 8306949-1 (Version None)
Quarter: 2012Q2

REPORT INFORMATION
  Report Type: 
  Country: None (occurrence: None)
  Receive Date: 20120420
  Receipt Date: 20120411
  Transmission Date: 20120825
  Serious: Yes (Other)
  Sender: FDA-Public Use
  Company Number: ACO_30024_2012

PATIENT
  Age: 35 Year
  Sex: Female
  Weight: 62.1428 kg

DRUGS (3)
  1. AMPYRA [Suspect]
     Indication: MULTIPLE SCLEROSIS
     Dosage: 10 MG, QHS, ORAL
     Route: 048
     Dates: start: 20111004
  2. CYMBALTA [Concomitant]
  3. FISH OIL (FISH OIL) [Concomitant]

REACTIONS (2)
  - NEPHROLITHIASIS [None]
  - INAPPROPRIATE SCHEDULE OF DRUG ADMINISTRATION [None]
